FAERS Safety Report 18202944 (Version 1)
Quarter: 2020Q3

REPORT INFORMATION
  Report Type: Spontaneous
  Country: US (occurrence: US)
  Receive Date: 20200827
  Receipt Date: 20200827
  Transmission Date: 20201103
  Serious: No
  Sender: FDA-Public Use
  Company Number: US-THERAPEUTICSMD-2020TMD02806

PATIENT
  Age: 33 Year
  Sex: Female
  Weight: 65.76 kg

DRUGS (3)
  1. PROTEIN SHAKES [Concomitant]
  2. ANNOVERA [Suspect]
     Active Substance: ETHINYL ESTRADIOL\SEGESTERONE ACETATE
     Indication: CONTRACEPTION
     Dosage: 1 RING INSERTED FOR 21 DAYS
     Route: 067
     Dates: start: 20200527, end: 20200617
  3. ANNOVERA [Suspect]
     Active Substance: ETHINYL ESTRADIOL\SEGESTERONE ACETATE
     Dosage: 1 RING INSERTED FOR 21 DAYS
     Route: 067
     Dates: start: 20200624

REACTIONS (2)
  - Migraine [Recovered/Resolved]
  - Headache [Recovered/Resolved]

NARRATIVE: CASE EVENT DATE: 20200620
